FAERS Safety Report 14110645 (Version 1)
Quarter: 2017Q4

REPORT INFORMATION
  Report Type: Spontaneous
  Country: US (occurrence: US)
  Receive Date: 20171020
  Receipt Date: 20171020
  Transmission Date: 20180321
  Serious: Yes (Other)
  Sender: FDA-Public Use
  Company Number: None

PATIENT
  Age: 53 Year
  Sex: Female
  Weight: 83.25 kg

DRUGS (15)
  1. AMLODIPINE [Concomitant]
     Active Substance: AMLODIPINE BESYLATE
  2. TESTOSTERONE. [Concomitant]
     Active Substance: TESTOSTERONE
  3. INDOLE-3 CARBINOL [Concomitant]
  4. MULTI VITAMINS [Concomitant]
     Active Substance: VITAMINS
  5. PROGESTERONE. [Concomitant]
     Active Substance: PROGESTERONE
  6. L-LYSINE [Concomitant]
     Active Substance: LYSINE
  7. CYTOMEL [Concomitant]
     Active Substance: LIOTHYRONINE SODIUM
  8. VITAMIN D [Concomitant]
     Active Substance: CHOLECALCIFEROL
  9. OCUVITE [Concomitant]
     Active Substance: VITAMINS
  10. ALLEGRA [Suspect]
     Active Substance: FEXOFENADINE HYDROCHLORIDE
     Indication: SEASONAL ALLERGY
     Dosage: ?          QUANTITY:1 TABLET(S);?
     Route: 048
     Dates: start: 20171017, end: 20171017
  11. SYNTHROID [Concomitant]
     Active Substance: LEVOTHYROXINE SODIUM
  12. HRT - ESTROGEN [Concomitant]
  13. HAIR, SKIN AND NAILS [Concomitant]
  14. ADRENAL SUPPORT [Concomitant]
     Active Substance: HOMEOPATHICS
  15. HCTZ [Concomitant]
     Active Substance: HYDROCHLOROTHIAZIDE

REACTIONS (10)
  - Vertigo [None]
  - Pruritus [None]
  - Urticaria [None]
  - Swelling face [None]
  - Peripheral swelling [None]
  - Gait disturbance [None]
  - Dysstasia [None]
  - Diarrhoea [None]
  - Vomiting [None]
  - Dizziness [None]

NARRATIVE: CASE EVENT DATE: 20171017
